FAERS Safety Report 12000009 (Version 1)
Quarter: 2016Q1

REPORT INFORMATION
  Report Type: Spontaneous
  Country: JP (occurrence: JP)
  Receive Date: 20160204
  Receipt Date: 20160204
  Transmission Date: 20160526
  Serious: Yes (Other)
  Sender: FDA-Public Use
  Company Number: JP-TEVA-632370ISR

PATIENT
  Age: 75 Year
  Sex: Male

DRUGS (1)
  1. ACYCLOVIR. [Suspect]
     Active Substance: ACYCLOVIR
     Indication: ANTIVIRAL TREATMENT
     Dosage: 125 MG ACYCLOVIR , INITIATED ON SUCCESSIVE 2 DAYS
     Route: 042

REACTIONS (1)
  - Neurotoxicity [Recovered/Resolved]
